FAERS Safety Report 5262737-4 (Version None)
Quarter: 2007Q1

REPORT INFORMATION
  Report Type: 
  Country: None (occurrence: None)
  Receive Date: 20070312
  Receipt Date: 20070227
  Transmission Date: 20070707
  Serious: Yes (Disabling)
  Sender: FDA-Public Use
  Company Number: 2007SE00622

PATIENT
  Age: 32 Year
  Sex: Female

DRUGS (7)
  1. DEPRAKINE [Suspect]
  2. DEPRAKINE [Suspect]
     Dates: end: 20070226
  3. DEPRAKINE [Suspect]
     Dates: start: 20070227
  4. ABILIFY [Suspect]
  5. TRUXAL [Suspect]
     Dates: end: 20070227
  6. SEROQUEL [Suspect]
     Indication: SCHIZOPHRENIA, PARANOID TYPE
     Route: 048
     Dates: end: 20070226
  7. SEROQUEL [Suspect]
     Route: 048
     Dates: start: 20070227

REACTIONS (3)
  - ASTHENIA [None]
  - FATIGUE [None]
  - SALIVARY HYPERSECRETION [None]
